FAERS Safety Report 25051023 (Version 1)
Quarter: 2025Q1

REPORT INFORMATION
  Report Type: Spontaneous
  Country: US (occurrence: US)
  Receive Date: 20250307
  Receipt Date: 20250307
  Transmission Date: 20250408
  Serious: No
  Sender: COLGATE
  Company Number: US-COLGATE PALMOLIVE COMPANY-20240500963

PATIENT
  Sex: Female

DRUGS (1)
  1. PERIOGARD ALCOHOL FREE [Suspect]
     Active Substance: CHLORHEXIDINE GLUCONATE
     Dates: start: 202405

REACTIONS (4)
  - Paraesthesia oral [Unknown]
  - Mouth swelling [Unknown]
  - Lip dry [Unknown]
  - Dry mouth [Unknown]

NARRATIVE: CASE EVENT DATE: 20240529
